FAERS Safety Report 8129268-5 (Version None)
Quarter: 2012Q1

REPORT INFORMATION
  Report Type: 
  Country: None (occurrence: None)
  Receive Date: 20120210
  Receipt Date: 20111128
  Transmission Date: 20120608
  Serious: Yes (Other)
  Sender: FDA-Public Use
  Company Number: US-BRISTOL-MYERS SQUIBB COMPANY-16250961

PATIENT
  Age: 65 Year
  Sex: Female
  Weight: 61 kg

DRUGS (1)
  1. ORENCIA [Suspect]
     Dates: start: 20111011

REACTIONS (3)
  - BRONCHITIS [None]
  - NASOPHARYNGITIS [None]
  - PNEUMONIA [None]
